FAERS Safety Report 8219892-3 (Version None)
Quarter: 2012Q1

REPORT INFORMATION
  Report Type: 
  Country: None (occurrence: None)
  Receive Date: 20120319
  Receipt Date: 20120307
  Transmission Date: 20120608
  Serious: Yes (Hospitalization, Other)
  Sender: FDA-Public Use
  Company Number: US-CELGENEUS-163-21880-12020959

PATIENT
  Sex: Male

DRUGS (3)
  1. WHOLE BLOOD [Concomitant]
     Route: 041
  2. ASPIRIN [Concomitant]
     Indication: THROMBOSIS PROPHYLAXIS
     Dosage: 81 MILLIGRAM
     Route: 065
     Dates: start: 20111130
  3. REVLIMID [Suspect]
     Dosage: 10 MILLIGRAM
     Route: 048
     Dates: start: 20111130, end: 20120118

REACTIONS (5)
  - ANAEMIA [None]
  - SEPTIC SHOCK [None]
  - CONSTIPATION [None]
  - NEUTROPENIA [None]
  - DEEP VEIN THROMBOSIS [None]
